FAERS Safety Report 6711911-6 (Version None)
Quarter: 2010Q2

REPORT INFORMATION
  Report Type: 
  Country: None (occurrence: None)
  Receive Date: 20100505
  Receipt Date: 20100503
  Transmission Date: 20101027
  Serious: Yes (Life-Threatening, Hospitalization, Other)
  Sender: FDA-Public Use
  Company Number: US-MERCK-1004USA00948

PATIENT
  Sex: Male

DRUGS (9)
  1. JANUVIA [Suspect]
     Indication: TYPE 2 DIABETES MELLITUS
     Route: 048
     Dates: start: 20060101
  2. JANUVIA [Suspect]
     Route: 048
     Dates: start: 20100108
  3. ACTOS [Concomitant]
     Route: 065
  4. LISINOPRIL [Concomitant]
     Route: 065
  5. OMEPRAZOLE [Concomitant]
     Route: 065
  6. ASPIRIN [Concomitant]
     Route: 065
  7. VITAMINS (UNSPECIFIED) [Concomitant]
     Route: 065
  8. MAGNESIUM (UNSPECIFIED) [Concomitant]
     Route: 065
  9. SYMBICORT [Concomitant]
     Route: 065

REACTIONS (2)
  - LUNG CANCER METASTATIC [None]
  - METASTASES TO LIVER [None]
